FAERS Safety Report 6483262-9 (Version None)
Quarter: 2009Q4

REPORT INFORMATION
  Report Type: 
  Country: None (occurrence: None)
  Receive Date: 20091209
  Receipt Date: 20091201
  Transmission Date: 20100525
  Serious: Yes (Hospitalization)
  Sender: FDA-Public Use
  Company Number: US-ELI_LILLY_AND_COMPANY-US200912000632

PATIENT
  Sex: Female

DRUGS (1)
  1. FORTEO [Suspect]
     Dosage: 20 UG, DAILY (1/D)
     Route: 065
     Dates: start: 20090908

REACTIONS (6)
  - BRONCHITIS [None]
  - DYSPNOEA [None]
  - INSOMNIA [None]
  - SENSATION OF HEAVINESS [None]
  - SINUS HEADACHE [None]
  - SWELLING FACE [None]
